FAERS Safety Report 11239972 (Version 1)
Quarter: 2015Q3

REPORT INFORMATION
  Report Type: Spontaneous
  Country: CA (occurrence: CA)
  Receive Date: 20150706
  Receipt Date: 20150706
  Transmission Date: 20151125
  Serious: Yes (Death, Life-Threatening, Hospitalization, Other)
  Sender: FDA-Public Use
  Company Number: CA-JNJFOC-20150623562

PATIENT
  Age: 67 Year
  Sex: Male

DRUGS (1)
  1. REMICADE [Suspect]
     Active Substance: INFLIXIMAB
     Indication: COLITIS ULCERATIVE
     Route: 042

REACTIONS (5)
  - Pyrexia [Fatal]
  - Sputum increased [Fatal]
  - Pneumocystis jirovecii pneumonia [Fatal]
  - Hypoxia [Fatal]
  - Chest X-ray abnormal [Fatal]
